FAERS Safety Report 9105981 (Version 2)
Quarter: 2013Q2

REPORT INFORMATION
  Report Type: Spontaneous
  Country: US (occurrence: US)
  Receive Date: 20130221
  Receipt Date: 20130610
  Transmission Date: 20140414
  Serious: Yes (Hospitalization, Other)
  Sender: FDA-Public Use
  Company Number: US-ASTELLAS-2013US001844

PATIENT
  Sex: Male

DRUGS (1)
  1. XTANDI [Suspect]
     Indication: NEOPLASM PROSTATE
     Dosage: 160 MG, UID/QD
     Route: 048
     Dates: start: 20130122

REACTIONS (3)
  - Hospitalisation [Unknown]
  - Mental status changes [Unknown]
  - Fatigue [Unknown]
